FAERS Safety Report 9251273 (Version 1)
Quarter: 2013Q1

REPORT INFORMATION
  Report Type: Spontaneous
  Country: US (occurrence: None)
  Receive Date: 20130305
  Receipt Date: 20130305
  Transmission Date: 20140127
  Serious: Yes (Hospitalization, Other)
  Sender: FDA-Public Use
  Company Number: 163-21880-12100481

PATIENT
  Age: 75 Year
  Sex: Male

DRUGS (4)
  1. REVLIMID [Suspect]
     Indication: PLASMA CELL MYELOMA
     Dosage: 25MG, 21 IN 21 D, PO
     Route: 048
     Dates: start: 201208
  2. DEXAMETHASONE (DEXAMETHASONE) [Concomitant]
  3. PREDNISONE (PREDNISONE) [Concomitant]
  4. TIAZAC (DILTIAZEM HYDROCHLORIDE) [Concomitant]

REACTIONS (2)
  - Loss of consciousness [None]
  - White blood cell count decreased [None]
